FAERS Safety Report 8217809-9 (Version None)
Quarter: 2012Q1

REPORT INFORMATION
  Report Type: 
  Country: None (occurrence: None)
  Receive Date: 20120319
  Receipt Date: 20120308
  Transmission Date: 20120608
  Serious: Yes (Other)
  Sender: FDA-Public Use
  Company Number: BR-JNJFOC-20120306125

PATIENT
  Age: 47 Year
  Sex: Female

DRUGS (3)
  1. REMICADE [Suspect]
     Indication: RHEUMATOID ARTHRITIS
     Route: 042
  2. REMICADE [Suspect]
     Route: 042
  3. FLEBOCORTID [Concomitant]
     Indication: PREMEDICATION
     Route: 065

REACTIONS (5)
  - INFUSION RELATED REACTION [None]
  - BLOOD PRESSURE FLUCTUATION [None]
  - VOMITING [None]
  - BRADYCARDIA [None]
  - ABDOMINAL PAIN [None]
